FAERS Safety Report 14511328 (Version 1)
Quarter: 2018Q1

REPORT INFORMATION
  Report Type: Spontaneous
  Country: US (occurrence: US)
  Receive Date: 20180209
  Receipt Date: 20180209
  Transmission Date: 20180509
  Serious: Yes (Other)
  Sender: FDA-Public Use
  Company Number: US-ENDO PHARMACEUTICALS INC-2017-003195

PATIENT
  Sex: Male
  Weight: 131.52 kg

DRUGS (1)
  1. TESTOSTERONE GEL [Suspect]
     Active Substance: TESTOSTERONE
     Indication: BLOOD TESTOSTERONE DECREASED
     Dosage: 10 MG, DAILY RUBBED ON ARMS, CHEST AND THIGHS
     Route: 061
     Dates: start: 2016

REACTIONS (5)
  - Product administered at inappropriate site [Unknown]
  - Blood alcohol increased [Unknown]
  - Weight increased [Unknown]
  - Cerebrovascular accident [Unknown]
  - Feeling of body temperature change [Unknown]

NARRATIVE: CASE EVENT DATE: 2017
